FAERS Safety Report 5757561-X (Version None)
Quarter: 2008Q2

REPORT INFORMATION
  Report Type: 
  Country: None (occurrence: None)
  Receive Date: 20080603
  Receipt Date: 20080522
  Transmission Date: 20081010
  Serious: Yes (Hospitalization, Other)
  Sender: FDA-Public Use
  Company Number: US-PFIZER INC-2007016421

PATIENT
  Sex: Female
  Weight: 49.9 kg

DRUGS (16)
  1. CHANTIX [Suspect]
     Indication: EX-SMOKER
  2. NAPROXEN [Concomitant]
     Dosage: TEXT:550 2 TABS DAILY
  3. MIACALCIN [Concomitant]
     Dosage: TEXT:ONE SPRAY DAILY
     Route: 045
  4. IBANDRONATE SODIUM [Concomitant]
  5. OMEPRAZOLE [Concomitant]
     Dosage: TEXT:1/1100 TWICE A DAY
  6. TOPAMAX [Concomitant]
  7. PRAZOSIN HCL [Concomitant]
     Dosage: DAILY DOSE:2MG-TEXT:DAILY
  8. PREDNISONE TAB [Concomitant]
     Dosage: DAILY DOSE:10MG-TEXT:DAILY
  9. EVISTA [Concomitant]
     Dosage: DAILY DOSE:60MG-TEXT:DAILY
  10. CYMBALTA [Concomitant]
     Dosage: DAILY DOSE:120MG-TEXT:DAILY
  11. ADVAIR DISKUS 100/50 [Concomitant]
     Dosage: TEXT:250.50
  12. BENZONATATE [Concomitant]
  13. ZYRTEC [Concomitant]
     Dosage: DAILY DOSE:10MG
  14. REGLAN [Concomitant]
     Dosage: DAILY DOSE:10MG
  15. METHOTREXATE [Concomitant]
     Dosage: TEXT:12.5 MG WEEKLY
  16. ETANERCEPT [Concomitant]
     Dosage: TEXT:EVERY 2 WEEKS

REACTIONS (8)
  - COLITIS [None]
  - DEHYDRATION [None]
  - FEELING ABNORMAL [None]
  - LIPASE INCREASED [None]
  - NAUSEA [None]
  - PNEUMONIA [None]
  - SMALL INTESTINAL OBSTRUCTION [None]
  - VOMITING [None]
